FAERS Safety Report 7809102-0 (Version None)
Quarter: 2011Q4

REPORT INFORMATION
  Report Type: 
  Country: None (occurrence: None)
  Receive Date: 20111012
  Receipt Date: 20111006
  Transmission Date: 20120403
  Serious: Yes (Death, Other)
  Sender: FDA-Public Use
  Company Number: JP-SANOFI-AVENTIS-2011SA065753

PATIENT
  Age: 71 Year
  Sex: Male

DRUGS (8)
  1. FLUOROURACIL [Concomitant]
     Indication: RECTAL CANCER
     Route: 042
  2. LEVOLEUCOVORIN CALCIUM [Suspect]
     Route: 041
  3. OXALIPLATIN [Suspect]
  4. LEVOLEUCOVORIN CALCIUM [Suspect]
     Indication: RECTAL CANCER
     Dosage: ROUTE: DR
     Route: 041
  5. FLUOROURACIL [Concomitant]
     Dosage: FORM: CONTINOUS INFUSION
     Route: 041
  6. OXALIPLATIN [Suspect]
     Indication: RECTAL CANCER
     Dosage: ROUTE: DR
  7. GRAN [Concomitant]
     Indication: NEUTROPHIL COUNT DECREASED
     Route: 058
  8. MEROPENEM [Concomitant]
     Dosage: RUOTE: DR

REACTIONS (2)
  - NECROTISING FASCIITIS [None]
  - PLATELET COUNT DECREASED [None]
